FAERS Safety Report 15043503 (Version 1)
Quarter: 2018Q2

REPORT INFORMATION
  Report Type: Spontaneous
  Country: US (occurrence: US)
  Receive Date: 20180621
  Receipt Date: 20180621
  Transmission Date: 20180711
  Serious: No
  Sender: FDA-Public Use
  Company Number: US-SA-2018SA134154

PATIENT
  Age: 28 Year
  Sex: Female
  Weight: 70 kg

DRUGS (21)
  1. VENTOLIN P.F. [Concomitant]
     Active Substance: ALBUTEROL SULFATE
     Indication: ASTHMA
  2. ALBUTEROL SULFATE. [Concomitant]
     Active Substance: ALBUTEROL SULFATE
     Indication: WHEEZING
  3. PREDNISONE. [Concomitant]
     Active Substance: PREDNISONE
     Dosage: UNK
     Dates: start: 20171027
  4. CLOBETASOL PROPIONATE. [Concomitant]
     Active Substance: CLOBETASOL PROPIONATE
     Dosage: APPLY TO AFFECTED SKIN, BID
     Dates: start: 20141002
  5. MONTELUKAST [Concomitant]
     Active Substance: MONTELUKAST SODIUM
     Indication: HYPERSENSITIVITY
     Dosage: 10 MG, QD
     Route: 048
     Dates: start: 20150909
  6. BREO ELLIPTA [Concomitant]
     Active Substance: FLUTICASONE FUROATE\VILANTEROL TRIFENATATE
     Dosage: UNK UNK, QD
     Route: 055
     Dates: start: 20141002
  7. PROTOPIC [Concomitant]
     Active Substance: TACROLIMUS
     Dosage: UNK
     Dates: start: 20180417
  8. HYDROXYZINE HCL [Concomitant]
     Active Substance: HYDROXYZINE HYDROCHLORIDE
     Indication: PRURITUS
     Dosage: 1 TABLET BY MOUTH EVRY 6-8 HOURS AS NEEDED
     Dates: start: 20141002
  9. EPIPEN [Concomitant]
     Active Substance: EPINEPHRINE
     Indication: HYPERSENSITIVITY
     Dosage: INJECT INTO LATERAL THIGH
     Dates: start: 20141002
  10. ALBUTEROL SULFATE. [Concomitant]
     Active Substance: ALBUTEROL SULFATE
     Indication: COUGH
     Dosage: UNK
     Dates: start: 20151029
  11. FLUTICASONE PROPIONATE;SALMETEROL [Concomitant]
     Dosage: 1 INHALATION TWICE DAILY
     Dates: start: 20151029
  12. ALBUTEROL SULFATE. [Concomitant]
     Active Substance: ALBUTEROL SULFATE
     Indication: CHEST DISCOMFORT
  13. VYVANSE [Concomitant]
     Active Substance: LISDEXAMFETAMINE DIMESYLATE
  14. QNASL [Concomitant]
     Active Substance: BECLOMETHASONE DIPROPIONATE
     Dosage: 1-2 SPRAYS EACH NOSTRIL, QD
     Route: 045
     Dates: start: 20151029
  15. PROTOPIC [Concomitant]
     Active Substance: TACROLIMUS
     Dosage: UNK UNK, BID
     Dates: start: 20180328
  16. ALLEGRA-D [Concomitant]
     Active Substance: FEXOFENADINE\PSEUDOEPHEDRINE
     Indication: HYPERSENSITIVITY
  17. FLUTICASONE PROPIONATE;SALMETEROL [Concomitant]
     Indication: ASTHMA
     Dosage: 1 INHALATION TWICE DAILY
     Dates: start: 20150909
  18. PROAIR HFA [Concomitant]
     Active Substance: ALBUTEROL SULFATE
     Indication: ASTHMA
     Dosage: 2 PUFFS EVERY 4 HOURS AS NEEDED.
     Dates: start: 20150909
  19. ALBUTEROL SULFATE. [Concomitant]
     Active Substance: ALBUTEROL SULFATE
     Indication: DYSPNOEA
  20. DUPIXENT [Suspect]
     Active Substance: DUPILUMAB
     Indication: DERMATITIS ATOPIC
     Dosage: 300 MG,QOW
     Route: 058
     Dates: start: 20180315
  21. EUCRISA [Concomitant]
     Active Substance: CRISABOROLE
     Dosage: THIN FILM TO AFFECTED AREA, BID
     Dates: start: 20171115

REACTIONS (1)
  - Conjunctivitis [Recovered/Resolved]
